FAERS Safety Report 9342270 (Version 1)
Quarter: 2013Q2

REPORT INFORMATION
  Report Type: Spontaneous
  Country: CA (occurrence: CA)
  Receive Date: 20130611
  Receipt Date: 20130611
  Transmission Date: 20140414
  Serious: No
  Sender: FDA-Public Use
  Company Number: CA-TEVA-408816USA

PATIENT
  Age: 28 Year
  Sex: Female

DRUGS (2)
  1. PLAN B ONE-STEP [Suspect]
     Indication: CONTRACEPTION
     Dosage: 2 TABS (0.75MGX2)
     Route: 048
     Dates: start: 20130523, end: 20130523
  2. VITAMINS [Concomitant]

REACTIONS (6)
  - Ligament rupture [Not Recovered/Not Resolved]
  - Tooth injury [Not Recovered/Not Resolved]
  - Alopecia [Unknown]
  - Hormone level abnormal [Unknown]
  - Joint injury [Unknown]
  - Loose tooth [Unknown]
